FAERS Safety Report 6180373-2 (Version None)
Quarter: 2009Q2

REPORT INFORMATION
  Report Type: 
  Country: None (occurrence: None)
  Receive Date: 20090506
  Receipt Date: 20090424
  Transmission Date: 20091009
  Serious: Yes (Other)
  Sender: FDA-Public Use
  Company Number: US-PFIZER INC-2005098212

PATIENT
  Sex: Female

DRUGS (3)
  1. PROVERA [Suspect]
     Indication: MENOPAUSE
     Route: 048
     Dates: start: 19911218
  2. PREMARIN [Suspect]
     Indication: MENOPAUSE
     Route: 048
     Dates: start: 19911218
  3. MAXZIDE [Concomitant]
     Indication: OEDEMA
     Dosage: UNK
     Dates: start: 19800101

REACTIONS (1)
  - BREAST CANCER [None]
